FAERS Safety Report 5115792-6 (Version None)
Quarter: 2006Q3

REPORT INFORMATION
  Report Type: 
  Country: None (occurrence: None)
  Receive Date: 20060927
  Receipt Date: 20060915
  Transmission Date: 20061208
  Serious: Yes (Disabling)
  Sender: FDA-Public Use
  Company Number: PHBS2006JP14422

PATIENT
  Age: 59 Year
  Sex: Male

DRUGS (1)
  1. GLEEVEC [Suspect]
     Indication: BLAST CRISIS IN MYELOGENOUS LEUKAEMIA
     Dosage: 400 MG/DAY
     Route: 048
     Dates: start: 20050801

REACTIONS (3)
  - ARTERIOSCLEROSIS OBLITERANS [None]
  - EXTREMITY NECROSIS [None]
  - PERIPHERAL COLDNESS [None]
